FAERS Safety Report 8739120 (Version 3)
Quarter: 2012Q4

REPORT INFORMATION
  Report Type: 
  Country: US (occurrence: US)
  Receive Date: 20120823
  Receipt Date: 20120920
  Transmission Date: 20130627
  Serious: Yes (Other)
  Sender: FDA-Public Use
  Company Number: US-PFIZER INC-2012205571

PATIENT
  Age: 54 Year
  Sex: Female
  Weight: 57 kg

DRUGS (13)
  1. EFFEXOR XR [Suspect]
     Indication: ELEVATED MOOD
     Dosage: 150 mg, 1x/day (1 capsule with food Orally Once a day)
     Route: 048
     Dates: end: 201207
  2. EFFEXOR XR [Suspect]
     Indication: DEPRESSION
  3. HYDROXYZINE [Concomitant]
     Indication: HYPERSENSITIVITY
     Dosage: 25 mg, UNK
  4. NORTRIPTYLINE HYDROCHLORIDE [Concomitant]
     Indication: MIGRAINE
     Dosage: 50 mg, 1x/day
     Route: 048
  5. HYDROCODONE W/ACETAMINOPHEN [Concomitant]
     Dosage: 750/10mg 1 tablet as needed orally every 6 hours
     Route: 048
  6. SOMA [Concomitant]
     Indication: MUSCLE RELAXANT THERAPY
     Dosage: 350 mg, as needed, three times a day
     Route: 048
  7. ALPRAZOLAM [Concomitant]
     Dosage: 2 mg, 3x/day
  8. METOPROLOL TARTRATE [Concomitant]
     Dosage: 25 mg, 2x/day
     Route: 048
  9. AMLODIPINE BESILATE [Concomitant]
     Dosage: 10 mg, 1x/day
     Route: 048
  10. MORPHINE [Concomitant]
     Dosage: 50 mg, 2x/day
  11. VISTARIL [Concomitant]
     Dosage: 25 mg, 2x/day
     Route: 048
  12. XANAX [Concomitant]
     Dosage: 2 mg, 3x/day
     Route: 048
  13. MS CONTIN [Concomitant]
     Dosage: 15 mg, every 12 hours
     Route: 048

REACTIONS (5)
  - Hypertension [Not Recovered/Not Resolved]
  - Cardiac discomfort [Not Recovered/Not Resolved]
  - Headache [Not Recovered/Not Resolved]
  - Vein disorder [Not Recovered/Not Resolved]
  - Hyperhidrosis [Not Recovered/Not Resolved]
